FAERS Safety Report 9507761 (Version 3)
Quarter: 2014Q4

REPORT INFORMATION
  Report Type: Spontaneous
  Country: US (occurrence: US)
  Receive Date: 20130909
  Receipt Date: 20141111
  Transmission Date: 20150529
  Serious: Yes (Death, Hospitalization, Disabling)
  Sender: FDA-Public Use
  Company Number: US-SANOFI-AVENTIS-2013SA088413

PATIENT
  Age: 64 Year
  Sex: Male

DRUGS (1)
  1. PLAVIX [Suspect]
     Active Substance: CLOPIDOGREL BISULFATE
     Indication: PRODUCT USED FOR UNKNOWN INDICATION
     Route: 048
     Dates: start: 20080522, end: 20110530

REACTIONS (4)
  - Cerebral haemorrhage [Fatal]
  - Pain [Fatal]
  - Multiple injuries [Fatal]
  - Physical disability [Unknown]

NARRATIVE: CASE EVENT DATE: 20110530
